FAERS Safety Report 8120226-3 (Version None)
Quarter: 2012Q1

REPORT INFORMATION
  Report Type: 
  Country: None (occurrence: None)
  Receive Date: 20120207
  Receipt Date: 20120131
  Transmission Date: 20120608
  Serious: Yes (Other)
  Sender: FDA-Public Use
  Company Number: PHHY2012AU009291

PATIENT
  Sex: Male

DRUGS (4)
  1. PAMIDRONATE DISODIUM [Suspect]
     Indication: HYPERCALCAEMIA
  2. PAMIDRONATE DISODIUM [Suspect]
     Indication: MULTIPLE MYELOMA
     Dosage: UNK UKN, UNK
     Route: 042
     Dates: start: 20090101
  3. LENALIDOMIDE [Concomitant]
     Dosage: UNK UKN, UNK
  4. DEXAMETHASONE [Concomitant]
     Dosage: UNK UKN, UNK

REACTIONS (3)
  - BONE LOSS [None]
  - PARAESTHESIA [None]
  - EXPOSED BONE IN JAW [None]
